FAERS Safety Report 9174707 (Version 1)
Quarter: 2013Q1

REPORT INFORMATION
  Report Type: Spontaneous
  Country: DE (occurrence: DE)
  Receive Date: 20130320
  Receipt Date: 20130320
  Transmission Date: 20140127
  Serious: Yes (Hospitalization)
  Sender: FDA-Public Use
  Company Number: DE-PFIZER INC-2013086352

PATIENT
  Age: 52 Year
  Sex: Female

DRUGS (4)
  1. EPIRUBICIN HCL [Suspect]
     Indication: BREAST CANCER
     Dosage: 12 CYCLES
  2. DOCETAXEL [Suspect]
     Indication: BREAST CANCER
     Dosage: 12 CYCLES
  3. FLUOROURACIL [Suspect]
     Indication: BREAST CANCER
     Dosage: 12 CYCLES
  4. CYCLOPHOSPHAMIDE [Suspect]
     Indication: BREAST CANCER
     Dosage: 12 CYCLES

REACTIONS (2)
  - Scleroderma [Recovering/Resolving]
  - Mucosal discolouration [Not Recovered/Not Resolved]
